FAERS Safety Report 6357601-3 (Version None)
Quarter: 2009Q3

REPORT INFORMATION
  Report Type: 
  Country: None (occurrence: None)
  Receive Date: 20090916
  Receipt Date: 20090908
  Transmission Date: 20100115
  Serious: Yes (Other)
  Sender: FDA-Public Use
  Company Number: PHHY2009CH35611

PATIENT
  Age: 62 Year
  Sex: Male

DRUGS (5)
  1. LESCOL [Suspect]
  2. EZETROL [Suspect]
     Dosage: UNK
     Dates: start: 20090101
  3. SORTIS [Suspect]
     Dosage: UNK
     Dates: start: 20060101
  4. SORTIS [Suspect]
     Dosage: UNK
     Dates: start: 20080101
  5. SORTIS [Suspect]
     Dosage: UNK
     Dates: start: 20090101

REACTIONS (3)
  - BLOOD CREATINE PHOSPHOKINASE INCREASED [None]
  - RESTLESS LEGS SYNDROME [None]
  - SLEEP APNOEA SYNDROME [None]
